FAERS Safety Report 5995388-4 (Version None)
Quarter: 2008Q4

REPORT INFORMATION
  Report Type: 
  Country: None (occurrence: None)
  Receive Date: 20081212
  Receipt Date: 20081202
  Transmission Date: 20090506
  Serious: Yes (Other)
  Sender: FDA-Public Use
  Company Number: JP-PFIZER INC-2008101594

PATIENT

DRUGS (5)
  1. ADRIACIN [Suspect]
     Indication: NON-HODGKIN'S LYMPHOMA
  2. ENDOXAN [Suspect]
     Indication: NON-HODGKIN'S LYMPHOMA
  3. RITUXAN [Suspect]
     Indication: NON-HODGKIN'S LYMPHOMA
  4. ONCOVIN [Suspect]
     Indication: NON-HODGKIN'S LYMPHOMA
  5. PREDONINE [Suspect]
     Indication: NON-HODGKIN'S LYMPHOMA
     Route: 048

REACTIONS (1)
  - PNEUMONITIS [None]
